FAERS Safety Report 5005749-8 (Version None)
Quarter: 2006Q2

REPORT INFORMATION
  Report Type: 
  Country: None (occurrence: None)
  Receive Date: 20060518
  Receipt Date: 20060511
  Transmission Date: 20061013
  Serious: Yes (Hospitalization, Other)
  Sender: FDA-Public Use
  Company Number: US-BRISTOL-MYERS SQUIBB COMPANY-13375605

PATIENT
  Age: 58 Year
  Sex: Female

DRUGS (12)
  1. ORENCIA [Suspect]
     Indication: RHEUMATOID ARTHRITIS
     Route: 042
     Dates: start: 20060301
  2. ANTIVERT [Concomitant]
     Route: 048
     Dates: start: 20060329
  3. LEVOXYL [Concomitant]
     Dates: start: 19970101
  4. HYDROCHLOROTHIAZIDE [Concomitant]
     Dates: start: 20060311
  5. AVANDIA [Concomitant]
     Dates: start: 20000101
  6. TYLENOL [Concomitant]
     Dates: start: 20000801
  7. FOLIC ACID [Concomitant]
     Dates: start: 20001016
  8. ETODOLAC [Concomitant]
     Dates: start: 20060118
  9. UNIVASC [Concomitant]
     Dates: start: 20060201
  10. HYDROCODONE [Concomitant]
     Dates: start: 20000601
  11. FUROSEMIDE [Concomitant]
     Dates: start: 20051101
  12. EFFEXOR [Concomitant]
     Dates: start: 20050601

REACTIONS (2)
  - ESCHERICHIA SEPSIS [None]
  - PNEUMONIA [None]
